FAERS Safety Report 24279580 (Version 1)
Quarter: 2024Q3

REPORT INFORMATION
  Report Type: Spontaneous
  Country: NO (occurrence: NO)
  Receive Date: 20240904
  Receipt Date: 20240904
  Transmission Date: 20241016
  Serious: Yes (Hospitalization, Other)
  Sender: GLAXOSMITHKLINE
  Company Number: None

PATIENT

DRUGS (8)
  1. WELLBUTRIN [Suspect]
     Active Substance: BUPROPION HYDROCHLORIDE
     Indication: Depression
     Dosage: 300 MG, QD
     Route: 048
     Dates: start: 201303, end: 202405
  2. FENTANYL TRANSDERMAL SYSTEM [Concomitant]
     Active Substance: FENTANYL
     Indication: Pain
     Dosage: 1 DF, Q3D (CHANGED EVERY 72 HOURS)
     Route: 062
     Dates: start: 200606
  3. SEROQUEL [Concomitant]
     Active Substance: QUETIAPINE FUMARATE
     Indication: Hallucination
     Dosage: 100 MG (100 MG ONCE, AS REQUIRED)
     Route: 065
     Dates: start: 2021
  4. SEROQUEL [Concomitant]
     Active Substance: QUETIAPINE FUMARATE
     Indication: Emotional distress
  5. OXAZEPAM [Concomitant]
     Active Substance: OXAZEPAM
     Indication: Restlessness
     Dosage: 15 MG (15 MG ONCE DAILY AS REQUIRED)
     Route: 065
     Dates: start: 2016
  6. OXAZEPAM [Concomitant]
     Active Substance: OXAZEPAM
     Indication: Panic reaction
  7. OXAZEPAM [Concomitant]
     Active Substance: OXAZEPAM
     Indication: Anxiety
  8. PANTOPRAZOLE SODIUM [Concomitant]
     Active Substance: PANTOPRAZOLE SODIUM
     Indication: Gastrooesophageal reflux disease
     Dosage: 40 MG
     Route: 065
     Dates: start: 2005, end: 2018

REACTIONS (16)
  - Suicidal ideation [Unknown]
  - Suicide attempt [Unknown]
  - Depression [Recovered/Resolved]
  - Emotional poverty [Recovered/Resolved]
  - Idiopathic pancreatitis [Recovered/Resolved]
  - Loss of personal independence in daily activities [Unknown]
  - Social avoidant behaviour [Unknown]
  - Tremor [Recovered/Resolved]
  - Concomitant disease aggravated [Recovered/Resolved]
  - Feeding disorder [Unknown]
  - Poor dental condition [Unknown]
  - Migraine [Unknown]
  - Brain fog [Unknown]
  - Muscle spasms [Recovered/Resolved]
  - Oral disorder [Unknown]
  - Abdominal pain [Unknown]
